FAERS Safety Report 8049270-1 (Version None)
Quarter: 2012Q1

REPORT INFORMATION
  Report Type: 
  Country: None (occurrence: None)
  Receive Date: 20120117
  Receipt Date: 20120106
  Transmission Date: 20120608
  Serious: Yes (Hospitalization)
  Sender: FDA-Public Use
  Company Number: US-ELI_LILLY_AND_COMPANY-US201201002652

PATIENT
  Age: 33 Year
  Sex: Female

DRUGS (3)
  1. KLONOPIN [Concomitant]
  2. CYMBALTA [Suspect]
     Dosage: UNK, UNKNOWN
  3. CYMBALTA [Suspect]
     Dosage: 30 MG, UNK

REACTIONS (2)
  - DRUG WITHDRAWAL SYNDROME [None]
  - BLOOD PRESSURE INCREASED [None]
